FAERS Safety Report 6818977-3 (Version None)
Quarter: 2010Q3

REPORT INFORMATION
  Report Type: 
  Country: None (occurrence: None)
  Receive Date: 20100707
  Receipt Date: 20100701
  Transmission Date: 20110219
  Serious: Yes (Other)
  Sender: FDA-Public Use
  Company Number: US-ASTRAZENECA-2007UW25119

PATIENT
  Age: 53 Year
  Sex: Female
  Weight: 111.1 kg

DRUGS (19)
  1. SEROQUEL [Suspect]
     Indication: DEPRESSION
     Route: 048
     Dates: start: 20020901
  2. SEROQUEL [Suspect]
     Indication: ANXIETY
     Route: 048
     Dates: start: 20020901
  3. SEROQUEL [Suspect]
     Indication: SCHIZOPHRENIA
     Route: 048
     Dates: start: 20020901
  4. SEROQUEL [Suspect]
     Dosage: 100 MG
     Route: 048
     Dates: start: 20030101, end: 20040101
  5. SEROQUEL [Suspect]
     Dosage: 100 MG
     Route: 048
     Dates: start: 20030101, end: 20040101
  6. SEROQUEL [Suspect]
     Dosage: 100 MG
     Route: 048
     Dates: start: 20030101, end: 20040101
  7. SEROQUEL [Suspect]
     Dosage: 25 MG-150 MG
     Route: 048
     Dates: start: 20030514
  8. SEROQUEL [Suspect]
     Dosage: 25 MG-150 MG
     Route: 048
     Dates: start: 20030514
  9. SEROQUEL [Suspect]
     Dosage: 25 MG-150 MG
     Route: 048
     Dates: start: 20030514
  10. PAXIL [Concomitant]
  11. LIPITOR [Concomitant]
  12. FUROSEMIDE [Concomitant]
  13. PLENDIL [Concomitant]
  14. DESYREL [Concomitant]
  15. TOPROL-XL [Concomitant]
  16. XANAX [Concomitant]
  17. KLOR-CON [Concomitant]
  18. AVANDAMET [Concomitant]
  19. AVANDIA [Concomitant]

REACTIONS (6)
  - CHOLELITHIASIS [None]
  - COLLAPSE OF LUNG [None]
  - DIABETIC COMPLICATION [None]
  - DIABETIC FOOT [None]
  - OBESITY [None]
  - TYPE 2 DIABETES MELLITUS [None]
